FAERS Safety Report 20278893 (Version 1)
Quarter: 2022Q1

REPORT INFORMATION
  Report Type: Spontaneous
  Country: JP (occurrence: JP)
  Receive Date: 20220103
  Receipt Date: 20220103
  Transmission Date: 20220423
  Serious: Yes (Other)
  Sender: FDA-Public Use
  Company Number: JP-EPICPHARMA-JP-2021EPCLIT01355

PATIENT
  Sex: Female

DRUGS (3)
  1. ETHAMBUTOL HYDROCHLORIDE [Suspect]
     Active Substance: ETHAMBUTOL HYDROCHLORIDE
     Indication: Mycobacterium avium complex infection
     Route: 065
  2. RIFAMPIN [Suspect]
     Active Substance: RIFAMPIN
     Indication: Mycobacterium avium complex infection
     Route: 065
  3. ISONIAZID [Suspect]
     Active Substance: ISONIAZID
     Indication: Mycobacterium avium complex infection
     Route: 065

REACTIONS (1)
  - Toxic epidermal necrolysis [Unknown]
